FAERS Safety Report 7866753-5 (Version None)
Quarter: 2011Q4

REPORT INFORMATION
  Report Type: 
  Country: None (occurrence: None)
  Receive Date: 20111028
  Receipt Date: 20110811
  Transmission Date: 20120403
  Serious: No
  Sender: FDA-Public Use
  Company Number: US-GLAXOSMITHKLINE-A0940527A

PATIENT
  Age: 63 Year
  Sex: Female

DRUGS (16)
  1. PREVACID [Concomitant]
  2. ADVAIR DISKUS 100/50 [Suspect]
     Indication: CHRONIC OBSTRUCTIVE PULMONARY DISEASE
     Dosage: 1PUFF TWICE PER DAY
     Route: 055
  3. PAROXETINE HCL [Concomitant]
  4. EXCEDRIN (MIGRAINE) [Concomitant]
  5. VITAMIN D [Concomitant]
  6. MULTI-VITAMIN [Concomitant]
  7. LOVAZA [Concomitant]
     Indication: SUPPLEMENTATION THERAPY
  8. BENAZEPRIL HYDROCHLORIDE [Concomitant]
  9. TEMAZEPAM [Concomitant]
  10. TRAMADOL HCL [Concomitant]
  11. LEVOTHYROXINE SODIUM [Concomitant]
  12. TYLENOL-500 [Concomitant]
  13. ASCORBIC ACID [Concomitant]
  14. ALBUTEROL [Concomitant]
  15. METOPROLOL TARTRATE [Concomitant]
  16. VITAMIN E [Concomitant]

REACTIONS (2)
  - PRODUCT QUALITY ISSUE [None]
  - DYSPNOEA [None]
